FAERS Safety Report 19470396 (Version 3)
Quarter: 2021Q4

REPORT INFORMATION
  Report Type: Report from Study
  Country: GB (occurrence: GB)
  Receive Date: 20210628
  Receipt Date: 20211126
  Transmission Date: 20220303
  Serious: Yes (Other)
  Sender: FDA-Public Use
  Company Number: GB-BRISTOL-MYERS SQUIBB COMPANY-BMS-2021-039699

PATIENT
  Age: 75 Year
  Sex: Male
  Weight: 74 kg

DRUGS (11)
  1. NIVOLUMAB [Suspect]
     Active Substance: NIVOLUMAB
     Indication: Oesophageal carcinoma
     Dosage: UNK
     Route: 065
     Dates: start: 20201125
  2. NIVOLUMAB [Suspect]
     Active Substance: NIVOLUMAB
     Dosage: UNK
     Route: 065
     Dates: start: 20210211
  3. NIVOLUMAB [Suspect]
     Active Substance: NIVOLUMAB
     Dosage: UNK
     Route: 065
     Dates: start: 20210408
  4. NIVOLUMAB [Suspect]
     Active Substance: NIVOLUMAB
     Dosage: UNK
     Route: 065
     Dates: start: 20210602
  5. ATORVASTATIN [Concomitant]
     Active Substance: ATORVASTATIN
     Indication: Product used for unknown indication
     Route: 065
  6. TAMSULOSIN [Concomitant]
     Active Substance: TAMSULOSIN
     Indication: Product used for unknown indication
     Route: 065
  7. LANSOPRAZOLE [Concomitant]
     Active Substance: LANSOPRAZOLE
     Indication: Product used for unknown indication
     Route: 065
  8. PRIMIDONE [Concomitant]
     Active Substance: PRIMIDONE
     Indication: Product used for unknown indication
     Route: 065
  9. AMLODIPINE [Concomitant]
     Active Substance: AMLODIPINE BESYLATE
     Indication: Product used for unknown indication
     Route: 065
  10. ATENOLOL [Concomitant]
     Active Substance: ATENOLOL
     Indication: Product used for unknown indication
     Route: 065
  11. ASPIRIN [Concomitant]
     Active Substance: ASPIRIN
     Indication: Product used for unknown indication
     Route: 065

REACTIONS (11)
  - Malignant neoplasm progression [Unknown]
  - Haematochezia [Unknown]
  - Arthralgia [Unknown]
  - Chest pain [Unknown]
  - Pruritus genital [Unknown]
  - Head injury [Unknown]
  - Abdominal pain upper [Unknown]
  - Pain in extremity [Unknown]
  - Back pain [Unknown]
  - Inguinal hernia [Unknown]
  - Aphonia [Not Recovered/Not Resolved]

NARRATIVE: CASE EVENT DATE: 20210516
